FAERS Safety Report 13930601 (Version 2)
Quarter: 2017Q3

REPORT INFORMATION
  Report Type: Spontaneous
  Country: IN (occurrence: IN)
  Receive Date: 20170901
  Receipt Date: 20170907
  Transmission Date: 20171127
  Serious: Yes (Other)
  Sender: FDA-Public Use
  Company Number: IN-BAUSCH-BL-2017-026103

PATIENT
  Age: 28 Year
  Sex: Male

DRUGS (3)
  1. FLUOROURACIL. [Suspect]
     Active Substance: FLUOROURACIL
     Indication: KERATINISING SQUAMOUS CELL CARCINOMA OF NASOPHARYNX
     Dosage: EVERY CYCLE
     Route: 065
  2. CISPLATIN. [Suspect]
     Active Substance: CISPLATIN
     Indication: KERATINISING SQUAMOUS CELL CARCINOMA OF NASOPHARYNX
     Dosage: EVERY CYCLE
     Route: 065
  3. PACLITAXEL. [Suspect]
     Active Substance: PACLITAXEL
     Indication: KERATINISING SQUAMOUS CELL CARCINOMA OF NASOPHARYNX
     Dosage: EVERY CYCLE
     Route: 065

REACTIONS (2)
  - Vasculitis [Recovering/Resolving]
  - Cerebrovascular accident [Recovering/Resolving]
